FAERS Safety Report 5002633-0 (Version None)
Quarter: 2006Q2

REPORT INFORMATION
  Report Type: 
  Country: None (occurrence: None)
  Receive Date: 20060510
  Receipt Date: 20060504
  Transmission Date: 20061013
  Serious: Yes (Hospitalization)
  Sender: FDA-Public Use
  Company Number: 06H-161-0306205-00

PATIENT
  Sex: 0

DRUGS (1)
  1. BUPIVACAINE HCL [Suspect]
     Indication: NERVE BLOCK
     Dosage: INTRAVASCULAR
     Route: 050

REACTIONS (4)
  - ACCIDENTAL EXPOSURE [None]
  - COMA [None]
  - CONVULSION [None]
  - DRUG TOXICITY [None]
